FAERS Safety Report 4941839-3 (Version None)
Quarter: 2006Q1

REPORT INFORMATION
  Report Type: 
  Country: None (occurrence: None)
  Receive Date: 20060313
  Receipt Date: 20060301
  Transmission Date: 20060701
  Serious: Yes (Other)
  Sender: FDA-Public Use
  Company Number: GB-SANOFI-SYNTHELABO-A01200601678

PATIENT
  Age: 42 Year
  Sex: Male

DRUGS (2)
  1. DANAZOL [Suspect]
     Indication: HEREDITARY ANGIOEDEMA
     Route: 048
  2. ASPIRIN [Concomitant]
     Indication: HEADACHE
     Route: 048

REACTIONS (1)
  - PRIAPISM [None]
